FAERS Safety Report 14344914 (Version 1)
Quarter: 2018Q1

REPORT INFORMATION
  Report Type: Spontaneous
  Country: US (occurrence: US)
  Receive Date: 20180103
  Receipt Date: 20180103
  Transmission Date: 20180509
  Serious: Yes (Other)
  Sender: FDA-Public Use
  Company Number: US-UCBSA-2017052987

PATIENT
  Age: 48 Year
  Sex: Female

DRUGS (1)
  1. CIMZIA [Suspect]
     Active Substance: CERTOLIZUMAB PEGOL
     Indication: PRODUCT USED FOR UNKNOWN INDICATION
     Dosage: UNK, NDC # 50474071079
     Dates: start: 20170321, end: 2017

REACTIONS (3)
  - Fracture [Unknown]
  - Injury [Unknown]
  - Exostosis [Unknown]

NARRATIVE: CASE EVENT DATE: 20170730
